FAERS Safety Report 14343752 (Version 2)
Quarter: 2018Q1

REPORT INFORMATION
  Report Type: Spontaneous
  Country: US (occurrence: US)
  Receive Date: 20180102
  Receipt Date: 20180209
  Transmission Date: 20180509
  Serious: Yes (Hospitalization)
  Sender: FDA-Public Use
  Company Number: US-PFIZER INC-2017552525

PATIENT
  Age: 69 Year
  Sex: Male
  Weight: 99.8 kg

DRUGS (9)
  1. HUMULIN NOS [Concomitant]
     Active Substance: INSULIN HUMAN
     Indication: TYPE 2 DIABETES MELLITUS
     Dosage: 60 IU, 2X/DAY; 60 UNITS TWICE A DAY, INJECTABLE
  2. WELLBUTRIN [Concomitant]
     Active Substance: BUPROPION HYDROCHLORIDE
     Indication: TREMOR
     Dosage: 200 MG, 2X/DAY
     Route: 048
  3. PROZAC [Concomitant]
     Active Substance: FLUOXETINE HYDROCHLORIDE
     Indication: DEPRESSION
     Dosage: 40 MG, 2X/DAY
     Route: 048
  4. ARICEPT [Concomitant]
     Active Substance: DONEPEZIL HYDROCHLORIDE
     Indication: DEPRESSION
     Dosage: 10 MG, 1X/DAY
     Route: 048
  5. LOMOTIL [Suspect]
     Active Substance: ATROPINE SULFATE\DIPHENOXYLATE HYDROCHLORIDE
     Indication: SHORT-BOWEL SYNDROME
  6. ABILIFY [Concomitant]
     Active Substance: ARIPIPRAZOLE
  7. BENZTROPINE. [Concomitant]
     Active Substance: BENZTROPINE
     Indication: TREMOR
     Dosage: 1 MG, 3X/DAY
     Route: 048
  8. SIMVASTATIN. [Concomitant]
     Active Substance: SIMVASTATIN
     Indication: TREMOR
     Dosage: 10 MG, 1X/DAY
     Route: 048
  9. LOMOTIL [Suspect]
     Active Substance: ATROPINE SULFATE\DIPHENOXYLATE HYDROCHLORIDE
     Indication: DIARRHOEA
     Dosage: LIKE 5 AT A TIME
     Route: 048

REACTIONS (3)
  - Confusional state [Not Recovered/Not Resolved]
  - Product use issue [Unknown]
  - Fall [Unknown]

NARRATIVE: CASE EVENT DATE: 20171218
